FAERS Safety Report 5350953-2 (Version None)
Quarter: 2007Q2

REPORT INFORMATION
  Report Type: 
  Country: None (occurrence: None)
  Receive Date: 20070608
  Receipt Date: 20070606
  Transmission Date: 20071010
  Serious: Yes (Other)
  Sender: FDA-Public Use
  Company Number: A0642964A

PATIENT
  Age: 43 Year
  Sex: Female
  Weight: 63.6 kg

DRUGS (4)
  1. NICODERM CQ [Suspect]
     Indication: SMOKING CESSATION THERAPY
     Dosage: 21MG UNKNOWN
     Route: 062
     Dates: start: 20070306, end: 20070309
  2. NICOTINE [Suspect]
     Indication: SMOKING CESSATION THERAPY
     Route: 062
     Dates: end: 20070309
  3. THIAZIDE DIURETIC [Suspect]
     Indication: HYPERTENSION
     Route: 065
  4. BETA BLOCKER [Concomitant]
     Indication: HYPERTENSION
     Dates: end: 20070309

REACTIONS (13)
  - ABDOMINAL PAIN UPPER [None]
  - ATRIAL FIBRILLATION [None]
  - BLOOD CALCIUM INCREASED [None]
  - CHEST DISCOMFORT [None]
  - CHEST PAIN [None]
  - FEAR [None]
  - FEELING ABNORMAL [None]
  - HEART RATE INCREASED [None]
  - HYPERTENSION [None]
  - NAUSEA [None]
  - OVERDOSE [None]
  - PALPITATIONS [None]
  - VOMITING [None]
